FAERS Safety Report 5846777-X (Version None)
Quarter: 2008Q3

REPORT INFORMATION
  Report Type: 
  Country: None (occurrence: None)
  Receive Date: 20080815
  Receipt Date: 20080805
  Transmission Date: 20090109
  Serious: Yes (Disabling, Other)
  Sender: FDA-Public Use
  Company Number: US-MERCK-0807USA05718

PATIENT
  Age: 53 Year
  Sex: Female
  Weight: 64 kg

DRUGS (4)
  1. ZOCOR [Suspect]
     Indication: HYPERCHOLESTEROLAEMIA
     Route: 048
     Dates: start: 20080402, end: 20080417
  2. PRINIVIL [Concomitant]
     Route: 048
  3. HYDRODIURIL [Concomitant]
     Route: 048
  4. ZEGERID [Concomitant]
     Route: 048

REACTIONS (8)
  - ARTHRALGIA [None]
  - ASTHENIA [None]
  - BLOOD CREATINE PHOSPHOKINASE INCREASED [None]
  - FALL [None]
  - GAIT DISTURBANCE [None]
  - MUSCULAR WEAKNESS [None]
  - MYALGIA [None]
  - PAIN IN EXTREMITY [None]
